FAERS Safety Report 6356014-8 (Version None)
Quarter: 2009Q3

REPORT INFORMATION
  Report Type: 
  Country: None (occurrence: None)
  Receive Date: 20090915
  Receipt Date: 20070611
  Transmission Date: 20100115
  Serious: Yes (Hospitalization, Other)
  Sender: FDA-Public Use
  Company Number: US-ASTRAZENECA-2006UW11844

PATIENT
  Age: 40 Year
  Sex: Male
  Weight: 99.3 kg

DRUGS (12)
  1. SEROQUEL [Suspect]
     Indication: DEPRESSION
     Route: 048
     Dates: start: 19960101, end: 20050101
  2. SEROQUEL [Suspect]
     Route: 048
     Dates: start: 20040101
  3. RISPERDAL [Concomitant]
     Dates: start: 19971203
  4. SOLIAN [Concomitant]
     Dates: start: 19971203
  5. THORAZINE [Concomitant]
     Dates: start: 20050101
  6. ZYPREXA [Concomitant]
     Dates: start: 20050101
  7. INSULIN [Concomitant]
     Dosage: 54,44 UNITS, 70/30 50 U BID
     Dates: start: 20031204
  8. PYRIDOXINE [Concomitant]
     Dates: start: 20040422
  9. TRAZODONE [Concomitant]
     Dates: start: 20040422
  10. ATIVAN [Concomitant]
     Dosage: P.R.N
     Dates: start: 20031204
  11. LEXAPRO [Concomitant]
     Dates: start: 20031205
  12. PARLODEL [Concomitant]
     Route: 048
     Dates: start: 20031213

REACTIONS (9)
  - CHEST PAIN [None]
  - DIABETES MELLITUS [None]
  - DIABETES MELLITUS INADEQUATE CONTROL [None]
  - DIABETIC KETOACIDOSIS [None]
  - FLANK PAIN [None]
  - INJURY [None]
  - PANCREATITIS [None]
  - TYPE 1 DIABETES MELLITUS [None]
  - TYPE 2 DIABETES MELLITUS [None]
